FAERS Safety Report 6270644-3 (Version None)
Quarter: 2009Q3

REPORT INFORMATION
  Report Type: 
  Country: None (occurrence: None)
  Receive Date: 20090716
  Receipt Date: 20090706
  Transmission Date: 20100115
  Serious: Yes (Death, Life-Threatening, Other)
  Sender: FDA-Public Use
  Company Number: TR-NOVOPROD-289063

PATIENT
  Age: 26 Year
  Sex: Female

DRUGS (4)
  1. NOVORAPID [Suspect]
     Indication: TYPE 1 DIABETES MELLITUS
     Route: 058
  2. INSULIN LISPRO [Suspect]
     Indication: TYPE 1 DIABETES MELLITUS
  3. NPH INSULIN [Suspect]
     Indication: TYPE 1 DIABETES MELLITUS
     Route: 058
  4. INSULIN HUMAN [Suspect]
     Indication: TYPE 1 DIABETES MELLITUS
     Route: 058

REACTIONS (8)
  - ANAPHYLACTIC REACTION [None]
  - BLOOD GLUCOSE INCREASED [None]
  - DIABETIC KETOACIDOSIS [None]
  - DRUG HYPERSENSITIVITY [None]
  - HYPOGLYCAEMIA [None]
  - INJECTION SITE NODULE [None]
  - OEDEMA PERIPHERAL [None]
  - SERUM SICKNESS-LIKE REACTION [None]
